FAERS Safety Report 9174662 (Version 1)
Quarter: 2013Q1

REPORT INFORMATION
  Report Type: Spontaneous
  Country: IN (occurrence: None)
  Receive Date: 20130318
  Receipt Date: 20130318
  Transmission Date: 20140127
  Serious: Yes (Hospitalization, Other)
  Sender: FDA-Public Use
  Company Number: FK201300756

PATIENT
  Age: 4 Year
  Sex: Male

DRUGS (1)
  1. HALOPERIDOL [Suspect]
     Route: 048

REACTIONS (8)
  - Accidental poisoning [None]
  - Dystonia [None]
  - Somnolence [None]
  - Hyperhidrosis [None]
  - Hyperthermia [None]
  - Urinary retention [None]
  - Tremor [None]
  - Loss of consciousness [None]
